FAERS Safety Report 14221599 (Version 2)
Quarter: 2017Q4

REPORT INFORMATION
  Report Type: Spontaneous
  Country: CN (occurrence: CN)
  Receive Date: 20171123
  Receipt Date: 20171130
  Transmission Date: 20180321
  Serious: Yes (Other)
  Sender: FDA-Public Use
  Company Number: CN-B.I. PHARMACEUTICALS,INC./RIDGEFIELD-2017-BI-062222

PATIENT
  Age: 57 Year
  Sex: Male

DRUGS (4)
  1. ACTILYSE [Suspect]
     Active Substance: ALTEPLASE
     Indication: HEPATIC ARTERY THROMBOSIS
     Route: 065
  2. ENTECAVIR. [Concomitant]
     Active Substance: ENTECAVIR
     Indication: HEPATITIS B
     Route: 048
  3. BETALOC [Concomitant]
     Active Substance: METOPROLOL TARTRATE
     Indication: HYPERTENSION
     Route: 048
  4. TELMISARTAN (MICARDIS) [Concomitant]
     Indication: HYPERTENSION
     Route: 065

REACTIONS (2)
  - Intra-abdominal haemorrhage [Unknown]
  - Vascular pseudoaneurysm [Unknown]
